FAERS Safety Report 7471394-8 (Version None)
Quarter: 2011Q2

REPORT INFORMATION
  Report Type: 
  Country: None (occurrence: None)
  Receive Date: 20110510
  Receipt Date: 20110428
  Transmission Date: 20111010
  Serious: Yes (Other)
  Sender: FDA-Public Use
  Company Number: US-BAYER-2011-036810

PATIENT
  Sex: Female

DRUGS (7)
  1. XANAX [Concomitant]
     Indication: INSOMNIA
  2. ALTACE [Concomitant]
  3. CIPRO [Suspect]
     Indication: ENTEROCOLITIS INFECTIOUS
     Dosage: UNK
     Route: 042
     Dates: end: 20110401
  4. CIPRO [Suspect]
     Indication: PNEUMONIA
  5. METOPROLOL SUCCINATE [Concomitant]
  6. CIPRO [Suspect]
     Indication: URINARY TRACT INFECTION
     Dosage: 500 MG, BID
     Route: 048
  7. CALAN [Concomitant]

REACTIONS (3)
  - TENDON RUPTURE [None]
  - CARDIAC DISCOMFORT [None]
  - BLOOD PRESSURE INCREASED [None]
